FAERS Safety Report 9185529 (Version 4)
Quarter: 2013Q2

REPORT INFORMATION
  Report Type: Spontaneous
  Country: US (occurrence: US)
  Receive Date: 20130325
  Receipt Date: 20130520
  Transmission Date: 20140414
  Serious: Yes (Hospitalization)
  Sender: FDA-Public Use
  Company Number: US-BIOGENIDEC-2013BI026383

PATIENT
  Sex: Female

DRUGS (2)
  1. TYSABRI [Suspect]
     Indication: MULTIPLE SCLEROSIS
     Route: 042
     Dates: start: 20070516
  2. TYSABRI [Suspect]
     Indication: MULTIPLE SCLEROSIS
     Route: 042
     Dates: end: 20130131

REACTIONS (10)
  - Multiple sclerosis relapse [Not Recovered/Not Resolved]
  - Pancreatitis necrotising [Unknown]
  - Acute respiratory failure [Unknown]
  - Pneumonia aspiration [Unknown]
  - Thrombocytopenia [Unknown]
  - Renal failure acute [Unknown]
  - Urinary tract infection [Unknown]
  - Bradycardia [Unknown]
  - Hypotension [Unknown]
  - Hypoglycaemia [Unknown]
